FAERS Safety Report 6839192-3 (Version None)
Quarter: 2010Q2

REPORT INFORMATION
  Report Type: 
  Country: None (occurrence: None)
  Receive Date: 20100629
  Receipt Date: 20100408
  Transmission Date: 20101027
  Serious: Yes (Other)
  Sender: FDA-Public Use
  Company Number: US-WYE-H14531710

PATIENT
  Age: 73 Year
  Sex: Female

DRUGS (1)
  1. TORISEL [Suspect]
     Indication: RENAL CANCER
     Dosage: 25 MG 1X PER 1 WK
     Dates: start: 20100101, end: 20100301

REACTIONS (1)
  - INTERSTITIAL LUNG DISEASE [None]
